FAERS Safety Report 7051219-5 (Version None)
Quarter: 2010Q4

REPORT INFORMATION
  Report Type: 
  Country: None (occurrence: None)
  Receive Date: 20101019
  Receipt Date: 20101007
  Transmission Date: 20110411
  Serious: Yes (Other)
  Sender: FDA-Public Use
  Company Number: US-BAYER-201036197NA

PATIENT
  Age: 42 Year
  Sex: Female

DRUGS (4)
  1. BETASERON [Suspect]
     Indication: MULTIPLE SCLEROSIS
     Route: 058
     Dates: start: 20100705, end: 20100722
  2. BETASERON [Suspect]
     Dosage: TOTAL DAILY DOSE: 8 MIU
     Route: 058
     Dates: start: 20101005
  3. BETASERON [Suspect]
     Route: 058
     Dates: start: 20100907
  4. FLEXERIL [Concomitant]
     Indication: PREMEDICATION

REACTIONS (3)
  - MUSCLE SPASMS [None]
  - PAIN [None]
  - PARALYSIS [None]
